FAERS Safety Report 17906920 (Version 1)
Quarter: 2020Q2

REPORT INFORMATION
  Report Type: Spontaneous
  Country: US (occurrence: US)
  Receive Date: 20200617
  Receipt Date: 20200617
  Transmission Date: 20200714
  Serious: No
  Sender: FDA-Public Use
  Company Number: US-PFIZER INC-2020234742

PATIENT
  Age: 51 Year
  Sex: Female

DRUGS (1)
  1. XELJANZ XR [Suspect]
     Active Substance: TOFACITINIB CITRATE
     Indication: RHEUMATOID ARTHRITIS
     Dosage: 11 MG, 2X/DAY
     Route: 048
     Dates: start: 202005

REACTIONS (8)
  - Arthritis [Unknown]
  - Intervertebral disc protrusion [Unknown]
  - Fibromyalgia [Unknown]
  - Malaise [Unknown]
  - Arthralgia [Unknown]
  - Off label use [Unknown]
  - Memory impairment [Unknown]
  - Stenosis [Unknown]

NARRATIVE: CASE EVENT DATE: 202005
